FAERS Safety Report 7308046-0 (Version None)
Quarter: 2011Q1

REPORT INFORMATION
  Report Type: 
  Country: None (occurrence: None)
  Receive Date: 20110223
  Receipt Date: 20100909
  Transmission Date: 20110831
  Serious: Yes (Hospitalization)
  Sender: FDA-Public Use
  Company Number: US-BAYER-201025760NA

PATIENT
  Sex: Female
  Weight: 66.667 kg

DRUGS (23)
  1. OCELLA [Suspect]
     Indication: ACNE
     Route: 048
  2. CELEBREX [Concomitant]
     Dosage: UNK
     Dates: start: 20061001
  3. DEMEROL [Concomitant]
     Indication: ABDOMINAL PAIN UPPER
  4. MOBIC [Concomitant]
     Indication: PRODUCT USED FOR UNKNOWN INDICATION
  5. ANAPROX [Concomitant]
     Dosage: UNK
     Dates: start: 20070201
  6. HYDROCODONE BITARTRATE AND ACETAMINOPHEN [Concomitant]
     Dosage: 10-325 AS NEEDED
     Route: 048
  7. NAPROXEN [Concomitant]
     Dosage: UNK
     Dates: start: 20070601
  8. ROBAXIN [Concomitant]
     Indication: ARTHRALGIA
     Dosage: 500 MG, UNK
  9. ACETAMINOPHEN [Concomitant]
  10. ROZEREM [Concomitant]
     Indication: SLEEP DISORDER
     Dosage: 8 MG, AT BEDTIME
     Route: 048
  11. YAZ [Suspect]
  12. NORCO [Concomitant]
     Indication: PAIN MANAGEMENT
  13. VALIUM [Concomitant]
  14. FLEXERIL [Concomitant]
     Indication: RADICULOPATHY
  15. LYRICA [Concomitant]
     Indication: RADICULOPATHY
     Dosage: 75 MG, UNK
  16. CYCLOBENZAPRINE [Concomitant]
     Dosage: 10 MG, TID
     Route: 048
  17. NEURONTIN [Concomitant]
     Dosage: 300 MG, AT BED TIME
     Route: 048
  18. YAZ [Suspect]
     Indication: PREMENSTRUAL SYNDROME
     Dosage: UNK
     Route: 048
     Dates: start: 20061222
  19. NORCO [Concomitant]
     Indication: RADICULOPATHY
  20. VALIUM [Concomitant]
     Indication: PREMENSTRUAL SYNDROME
  21. KETOROLAC [Concomitant]
  22. YASMIN [Suspect]
     Indication: ACNE
     Route: 048
  23. YAZ [Suspect]
     Indication: CONTRACEPTION

REACTIONS (9)
  - GASTRITIS [None]
  - DIARRHOEA [None]
  - DYSPEPSIA [None]
  - CHOLECYSTITIS CHRONIC [None]
  - ABDOMINAL PAIN UPPER [None]
  - VOMITING [None]
  - NAUSEA [None]
  - CHOLELITHIASIS [None]
  - HIATUS HERNIA [None]
